FAERS Safety Report 16456798 (Version 1)
Quarter: 2019Q2

REPORT INFORMATION
  Report Type: Spontaneous
  Country: PT (occurrence: PT)
  Receive Date: 20190620
  Receipt Date: 20190620
  Transmission Date: 20190711
  Serious: Yes (Death, Hospitalization, Other)
  Sender: FDA-Public Use
  Company Number: PT-MYLANLABS-2019M1051215

PATIENT
  Age: 55 Year
  Sex: Male

DRUGS (18)
  1. SULFADIAZINE. [Concomitant]
     Active Substance: SULFADIAZINE
     Dosage: UNK
  2. PYRIMETHAMINE [Concomitant]
     Active Substance: PYRIMETHAMINE
     Dosage: UNK
  3. FOLINIC ACID [Concomitant]
     Active Substance: LEUCOVORIN
     Dosage: UNK
  4. GABAPENTIN. [Suspect]
     Active Substance: GABAPENTIN
     Dosage: 400 MILLIGRAM, Q8H (400 MG, TID)
     Dates: start: 200202
  5. TRAMADOL. [Suspect]
     Active Substance: TRAMADOL
     Dosage: 100 MG, BID
     Dates: start: 200202
  6. LOPINAVIR/RITONAVIR [Suspect]
     Active Substance: LOPINAVIR\RITONAVIR
     Indication: HIV INFECTION
     Dosage: UNK UNK, UNK
     Dates: start: 200202
  7. TRAMADOL. [Suspect]
     Active Substance: TRAMADOL
     Indication: PAIN
     Dosage: 200 MG, BID
     Dates: start: 200301
  8. TRAMADOL. [Suspect]
     Active Substance: TRAMADOL
     Dosage: 200 MG, BID
     Dates: start: 200301
  9. LAMIVUDINE. [Suspect]
     Active Substance: LAMIVUDINE
     Indication: HIV INFECTION
     Dosage: UNK UNK, UNK
     Dates: start: 200202
  10. AMITRIPTYLINE HYDROCHLORIDE. [Suspect]
     Active Substance: AMITRIPTYLINE HYDROCHLORIDE
     Indication: PRODUCT USED FOR UNKNOWN INDICATION
     Dosage: 25 QD
  11. GABAPENTIN. [Suspect]
     Active Substance: GABAPENTIN
     Dosage: 800 MG, QD
     Dates: start: 200709
  12. STAVUDINE. [Suspect]
     Active Substance: STAVUDINE
     Indication: HIV INFECTION
     Dosage: UNK UNK, UNK
     Dates: start: 200202
  13. AMITRIPTYLINE HYDROCHLORIDE. [Suspect]
     Active Substance: AMITRIPTYLINE HYDROCHLORIDE
     Dosage: 50 MG, QD
     Dates: start: 200202
  14. GABAPENTIN. [Suspect]
     Active Substance: GABAPENTIN
     Dosage: 300 MG, BID
     Dates: start: 201201
  15. PARACETAMOL [Suspect]
     Active Substance: ACETAMINOPHEN
     Indication: PAIN
     Dosage: 1 GRAM, Q8H (1 G, TID)
  16. GABAPENTIN. [Suspect]
     Active Substance: GABAPENTIN
     Indication: PRODUCT USED FOR UNKNOWN INDICATION
     Dosage: 1200 MG, QD
  17. GABAPENTIN. [Suspect]
     Active Substance: GABAPENTIN
     Dosage: 1600 MG, QD
     Dates: start: 200202
  18. GABAPENTIN. [Suspect]
     Active Substance: GABAPENTIN
     Dosage: 2400 MG, QD
     Dates: start: 200301

REACTIONS (27)
  - Pancytopenia [Fatal]
  - Coagulopathy [Fatal]
  - Ascites [Fatal]
  - Electric shock [Unknown]
  - Dysaesthesia [Unknown]
  - Encephalopathy [Fatal]
  - Hypoaesthesia [Unknown]
  - Musculoskeletal stiffness [Unknown]
  - Hemiplegia [Unknown]
  - Central pain syndrome [Unknown]
  - Muscle spasticity [Unknown]
  - Somnolence [Unknown]
  - CD4 lymphocytes decreased [Unknown]
  - Drug intolerance [Unknown]
  - Pain [Unknown]
  - Renal impairment [Unknown]
  - Vomiting [Unknown]
  - Liver disorder [Fatal]
  - Gastrointestinal haemorrhage [Fatal]
  - Facial pain [Unknown]
  - Paraesthesia [Unknown]
  - Dizziness [Unknown]
  - Portal hypertension [Fatal]
  - Nasopharyngitis [Unknown]
  - Discomfort [Unknown]
  - Neuralgia [Unknown]
  - Allodynia [Unknown]

NARRATIVE: CASE EVENT DATE: 200703
